FAERS Safety Report 19414391 (Version 2)
Quarter: 2021Q3

REPORT INFORMATION
  Report Type: Spontaneous
  Country: US (occurrence: US)
  Receive Date: 20210614
  Receipt Date: 20210816
  Transmission Date: 20211014
  Serious: Yes (Hospitalization)
  Sender: FDA-Public Use
  Company Number: US-BEXIMCO-2021BEX00026

PATIENT
  Age: 92 Year
  Sex: Male
  Weight: 78.46 kg

DRUGS (27)
  1. CARVEDILOL. [Suspect]
     Active Substance: CARVEDILOL
     Indication: HEART RATE INCREASED
     Dosage: 1.5625 MG, 3X/DAY (AT 6:00AM, 2:00PM, AND 10:00PM, TAKEN WITH 6.25 MG)
     Route: 048
     Dates: start: 2021
  2. TIMOLOL MALEATE. [Concomitant]
     Active Substance: TIMOLOL MALEATE
     Dosage: 1 DROP IN THE RIGHT EYE BEFORE BED (2 MINUTES AFTER LATANOPROST)
     Route: 047
  3. NERVE SUPPORT (VITAMINS B12, B2, B6, FOLIC ACID) [Concomitant]
     Dosage: 2 CAPSULES, 1X/DAY
  4. CARVEDILOL. [Suspect]
     Active Substance: CARVEDILOL
     Dosage: 6.25 MG, 3X/DAY (AT 6:00AM, 2:00PM, AND 10:00PM, TAKEN WITH 1.5625 MG)
     Route: 048
     Dates: start: 2021
  5. FISH OIL [Concomitant]
     Active Substance: FISH OIL
     Dosage: 1 G, 1X/DAY
  6. VITAMIN D EMULSION [Concomitant]
  7. UNSPECIFIED MEDICATION (BAUSCH AND LOMB FORMULA) [Concomitant]
  8. MANGESIUM MALATE [Concomitant]
     Dosage: UNK
  9. CARVEDILOL. [Suspect]
     Active Substance: CARVEDILOL
     Indication: HEART RATE INCREASED
     Dosage: 4 TABLETS A DAY
     Route: 048
  10. TAMSULOSIN [Concomitant]
     Active Substance: TAMSULOSIN
     Dosage: 0.4 MG, 1X/DAY
  11. LATANOPROST. [Concomitant]
     Active Substance: LATANOPROST
     Dosage: 1 DROP IN THE RIGHT EYE BEFORE BED
     Route: 047
  12. MELATONIN [Concomitant]
     Active Substance: MELATONIN
  13. IODINE POTASSIUM [Concomitant]
     Dosage: 1 DROP IN A GLASS OF WATER
  14. CARVEDILOL. [Suspect]
     Active Substance: CARVEDILOL
     Indication: HEART RATE INCREASED
     Dosage: 6.25 MG, 2X/DAY (WITH 3.125 MG AT 9:00AM AND 9:00PM)
     Route: 048
     Dates: start: 20210324, end: 2021
  15. ZOCOR [Concomitant]
     Active Substance: SIMVASTATIN
     Dosage: 10 MG, 1X/DAY
  16. COENZYME 210 [Concomitant]
     Dosage: 200 MG
  17. MULTIVITAMIN [Concomitant]
     Active Substance: VITAMINS
  18. CALTRATE [Concomitant]
     Active Substance: CALCIUM CARBONATE
     Dosage: 600 MG, 1X/DAY
  19. CARVEDILOL. [Suspect]
     Active Substance: CARVEDILOL
     Indication: HYPERTENSION
     Dosage: 3.125 MG, 2X/DAY (WITH 6.25 MG AT 9:00AM AND 9:00PM)
     Route: 048
     Dates: start: 20210324, end: 2021
  20. PLAVIX [Concomitant]
     Active Substance: CLOPIDOGREL BISULFATE
     Dosage: 75 MG, 1X/DAY
  21. GLUCOSAMINE/CHONDROITIN [Concomitant]
  22. TYLENOL [Concomitant]
     Active Substance: ACETAMINOPHEN
     Dosage: UNK, AS NEEDED
  23. OXYCODONE [Concomitant]
     Active Substance: OXYCODONE
     Dosage: 2.5 MG, 1X/DAY AT NIGHT
  24. PROSCAR [Concomitant]
     Active Substance: FINASTERIDE
     Dosage: 5 MG, 1X/DAY
  25. CARVEDILOL. [Suspect]
     Active Substance: CARVEDILOL
     Indication: HYPERTENSION
     Dosage: 6.25 MG, 2X/DAY
     Route: 048
  26. GABAPENTIN. [Concomitant]
     Active Substance: GABAPENTIN
     Dosage: 300 MG, 1X/DAY
  27. PREDNISONE. [Concomitant]
     Active Substance: PREDNISONE
     Dosage: 4 MG, 1X/DAY

REACTIONS (7)
  - Myocardial infarction [Recovered/Resolved]
  - Heart rate decreased [Not Recovered/Not Resolved]
  - Blood pressure increased [Recovering/Resolving]
  - Prostatitis [Recovered/Resolved]
  - Drug ineffective [Recovered/Resolved]
  - Therapeutic response shortened [Not Recovered/Not Resolved]
  - Off label use [Not Recovered/Not Resolved]

NARRATIVE: CASE EVENT DATE: 2021
